FAERS Safety Report 7247903-0 (Version None)
Quarter: 2011Q1

REPORT INFORMATION
  Report Type: 
  Country: None (occurrence: None)
  Receive Date: 20110127
  Receipt Date: 20110126
  Transmission Date: 20110831
  Serious: No
  Sender: FDA-Public Use
  Company Number: US-PFIZER INC-2011019161

PATIENT
  Sex: Female
  Weight: 46.259 kg

DRUGS (4)
  1. CELEXA [Concomitant]
     Dosage: 20 MG, UNK
  2. SERTRALINE HYDROCHLORIDE [Suspect]
     Indication: PANIC DISORDER
  3. SERTRALINE HYDROCHLORIDE [Suspect]
     Indication: DEPRESSION
     Dosage: UNK
     Route: 048
     Dates: start: 20110104
  4. ATIVAN [Concomitant]
     Indication: ANXIETY
     Dosage: UNK

REACTIONS (6)
  - DECREASED APPETITE [None]
  - NAUSEA [None]
  - ANXIETY [None]
  - MUSCLE SPASMS [None]
  - PAIN [None]
  - DIARRHOEA [None]
